FAERS Safety Report 6232241-5 (Version None)
Quarter: 2009Q2

REPORT INFORMATION
  Report Type: 
  Country: None (occurrence: None)
  Receive Date: 20090617
  Receipt Date: 20090604
  Transmission Date: 20091009
  Serious: Yes (Other)
  Sender: FDA-Public Use
  Company Number: JP-PFIZER INC-2009219035

PATIENT
  Age: 46 Year

DRUGS (6)
  1. ZOLOFT [Suspect]
     Indication: DEPRESSION
     Dosage: 25 MG, 2X/DAY
     Dates: start: 20090421, end: 20090515
  2. DOGMATYL [Suspect]
     Indication: AFFECT LABILITY
     Dosage: UNK
     Route: 048
     Dates: start: 19820101
  3. VALERIN [Suspect]
     Indication: CONVULSION
     Route: 048
     Dates: start: 20061101
  4. TEGRETOL [Suspect]
     Indication: CONVULSION
     Route: 048
     Dates: start: 20061101
  5. BENZALIN [Suspect]
     Indication: INSOMNIA
     Route: 048
     Dates: start: 19820101
  6. MAPROTILINE HYDROCHLORIDE [Concomitant]
     Dosage: UNK
     Route: 048
     Dates: start: 20061101

REACTIONS (3)
  - ABNORMAL BEHAVIOUR [None]
  - AGGRESSION [None]
  - SCREAMING [None]
